FAERS Safety Report 9454896 (Version 1)
Quarter: 2013Q3

REPORT INFORMATION
  Report Type: Spontaneous
  Country: US (occurrence: US)
  Receive Date: 20130813
  Receipt Date: 20130813
  Transmission Date: 20140515
  Serious: Yes (Hospitalization)
  Sender: FDA-Public Use
  Company Number: US-BRISTOL-MYERS SQUIBB COMPANY-19160233

PATIENT
  Sex: Male

DRUGS (2)
  1. YERVOY [Suspect]
     Dates: start: 2013
  2. COUMADIN [Suspect]

REACTIONS (2)
  - Malignant neoplasm progression [Unknown]
  - Cerebral haemorrhage [Unknown]
